FAERS Safety Report 8935609 (Version 2)
Quarter: 2012Q4

REPORT INFORMATION
  Report Type: 
  Country: DE (occurrence: DE)
  Receive Date: 20121130
  Receipt Date: 20121214
  Transmission Date: 20130627
  Serious: Yes (Other)
  Sender: FDA-Public Use
  Company Number: DE-PFIZER INC-2012298424

PATIENT
  Age: 65 Year
  Sex: Male
  Weight: 111 kg

DRUGS (2)
  1. LYRICA [Suspect]
     Indication: PHANTOM PAIN
     Dosage: 50 mg, 2x/day
     Dates: start: 201205, end: 201210
  2. MARCUMAR [Concomitant]
     Dosage: 1 DF, 1x/day
     Dates: start: 201204

REACTIONS (1)
  - Rash [Not Recovered/Not Resolved]
